FAERS Safety Report 4541304-1 (Version None)
Quarter: 2004Q4

REPORT INFORMATION
  Report Type: 
  Country: None (occurrence: None)
  Receive Date: 20041228
  Receipt Date: 20041220
  Transmission Date: 20050328
  Serious: Yes (Hospitalization, Other)
  Sender: FDA-Public Use
  Company Number: US-JNJFOC-20041205786

PATIENT
  Sex: Female

DRUGS (1)
  1. TYLENOL [Suspect]
     Indication: SUICIDE ATTEMPT
     Dates: start: 20030301, end: 20030301

REACTIONS (2)
  - INTENTIONAL OVERDOSE [None]
  - SUICIDE ATTEMPT [None]
